FAERS Safety Report 6915256-0 (Version None)
Quarter: 2010Q3

REPORT INFORMATION
  Report Type: 
  Country: None (occurrence: None)
  Receive Date: 20100809
  Receipt Date: 20091007
  Transmission Date: 20110219
  Serious: No
  Sender: FDA-Public Use
  Company Number: US-ABBOTT-09P-163-0602119-00

PATIENT
  Age: 56 Year
  Sex: Female

DRUGS (10)
  1. DEPAKOTE ER [Suspect]
     Indication: BIPOLAR DISORDER
     Dates: start: 20081211, end: 20081212
  2. DEPAKOTE ER [Suspect]
     Dates: start: 20081212, end: 20090501
  3. DEPAKOTE ER [Suspect]
     Dates: start: 20090501, end: 20090601
  4. DEPAKOTE ER [Suspect]
     Dates: start: 20090601, end: 20090701
  5. DEPAKOTE ER [Suspect]
     Dates: start: 20090701, end: 20090721
  6. LAMICTAL [Suspect]
     Indication: BIPOLAR DISORDER
     Dosage: UNKNOWN
     Dates: start: 20090101, end: 20090201
  7. LAMICTAL [Suspect]
     Dosage: 25 MILLIGRAM DAILY
     Dates: start: 20090201, end: 20090901
  8. LAMICTAL [Suspect]
     Dosage: TAPERING DOWN THE DOSE FROM 25 MILLIGRAM
     Dates: start: 20090901
  9. LEXAPRO [Concomitant]
     Indication: BIPOLAR DISORDER
     Dosage: UNKNOWN TAPERING DOSE
     Dates: start: 20080101, end: 20081201
  10. TRILEPTAL [Concomitant]
     Indication: BIPOLAR DISORDER
     Dosage: UNKNOWN TAPERING DOSE
     Dates: start: 20080101, end: 20081201

REACTIONS (5)
  - ALOPECIA [None]
  - ANXIETY [None]
  - APHASIA [None]
  - DEPRESSION [None]
  - DRUG LEVEL BELOW THERAPEUTIC [None]
